FAERS Safety Report 7816919-5 (Version None)
Quarter: 2011Q4

REPORT INFORMATION
  Report Type: 
  Country: None (occurrence: None)
  Receive Date: 20111017
  Receipt Date: 20111003
  Transmission Date: 20120403
  Serious: Yes (Hospitalization)
  Sender: FDA-Public Use
  Company Number: US-ELI_LILLY_AND_COMPANY-US201105007717

PATIENT
  Sex: Female

DRUGS (4)
  1. CALCIUM CARBONATE [Concomitant]
  2. FORTEO [Suspect]
     Indication: OSTEOPOROSIS
     Dosage: 20 UG, QD
     Route: 065
  3. VITAMIN D [Concomitant]
  4. TRAMADOL HCL [Concomitant]
     Indication: PAIN

REACTIONS (10)
  - HEAD DISCOMFORT [None]
  - BRADYPHRENIA [None]
  - FEELING ABNORMAL [None]
  - INJECTION SITE PAIN [None]
  - CHEST DISCOMFORT [None]
  - MYALGIA [None]
  - PALPITATIONS [None]
  - INJECTION SITE HAEMATOMA [None]
  - NAUSEA [None]
  - HEADACHE [None]
